FAERS Safety Report 7285156-8 (Version None)
Quarter: 2011Q1

REPORT INFORMATION
  Report Type: 
  Country: None (occurrence: None)
  Receive Date: 20110210
  Receipt Date: 20110131
  Transmission Date: 20110831
  Serious: Yes (Other)
  Sender: FDA-Public Use
  Company Number: PHHY2011AU09019

PATIENT
  Sex: Female

DRUGS (1)
  1. STALEVO 100 [Suspect]
     Dosage: UNK

REACTIONS (4)
  - MUSCULOSKELETAL STIFFNESS [None]
  - CRYING [None]
  - ABDOMINAL DISCOMFORT [None]
  - LOSS OF CONTROL OF LEGS [None]
